FAERS Safety Report 5298582-3 (Version None)
Quarter: 2007Q2

REPORT INFORMATION
  Report Type: 
  Country: None (occurrence: None)
  Receive Date: 20070409
  Receipt Date: 20070326
  Transmission Date: 20071010
  Serious: Yes (Hospitalization)
  Sender: FDA-Public Use
  Company Number: 239165

PATIENT
  Age: 79 Year
  Sex: Female

DRUGS (3)
  1. AVASTIN [Suspect]
     Indication: COLORECTAL CANCER METASTATIC
     Dosage: 565 MG, Q3W, INTRAVENOUS
     Route: 042
     Dates: start: 20070306
  2. CAPECITABINE (CAPECITABINE) [Suspect]
     Indication: COLORECTAL CANCER METASTATIC
     Dosage: 1500 MG, BID, ORAL
     Route: 048
     Dates: start: 20070306
  3. OXALIPLATIN [Suspect]
     Indication: COLORECTAL CANCER METASTATIC
     Dosage: 227.5 MG, Q3W, INTRAVENOUS
     Route: 042
     Dates: start: 20070306

REACTIONS (1)
  - RENAL FAILURE ACUTE [None]
